FAERS Safety Report 7118631-7 (Version None)
Quarter: 2010Q4

REPORT INFORMATION
  Report Type: 
  Country: None (occurrence: None)
  Receive Date: 20101027
  Receipt Date: 20100310
  Transmission Date: 20110411
  Serious: Yes (Other)
  Sender: FDA-Public Use
  Company Number: US-WYE-H14049810

PATIENT
  Age: 55 Year
  Sex: Female
  Weight: 106.69 kg

DRUGS (3)
  1. PREMARIN [Suspect]
     Indication: VULVOVAGINAL DRYNESS
     Dosage: 0.5 G 1X PER 1 DAY, ORAL
     Route: 048
     Dates: start: 20100309
  2. NORTRIPTYLINE HCL [Suspect]
     Indication: ANXIETY
     Dosage: 10 MG 1X PER 1 DAY,
     Dates: start: 20100309
  3. NORTRIPTYLINE HCL [Suspect]
     Indication: INSOMNIA
     Dosage: 10 MG 1X PER 1 DAY,
     Dates: start: 20100309

REACTIONS (3)
  - HYPOAESTHESIA [None]
  - PARAESTHESIA [None]
  - VULVOVAGINAL BURNING SENSATION [None]
